FAERS Safety Report 14963425 (Version 1)
Quarter: 2018Q2

REPORT INFORMATION
  Report Type: Spontaneous
  Country: JP (occurrence: JP)
  Receive Date: 20180601
  Receipt Date: 20180601
  Transmission Date: 20180711
  Serious: Yes (Other)
  Sender: FDA-Public Use
  Company Number: JP-GUERBET-JP-20180109

PATIENT
  Age: 58 Year
  Sex: Male

DRUGS (3)
  1. LIPIODOL [Suspect]
     Active Substance: ETHIODIZED OIL
     Indication: SCLEROTHERAPY
     Route: 065
  2. CYANOACRYLATE [Concomitant]
     Active Substance: OCRYLATE
     Indication: SCLEROTHERAPY
     Route: 065
  3. ETHANOLAMINE OLEATE. [Concomitant]
     Active Substance: ETHANOLAMINE OLEATE
     Indication: SCLEROTHERAPY
     Route: 065

REACTIONS (2)
  - Gastrointestinal ischaemia [Recovering/Resolving]
  - Abdominal pain upper [Recovering/Resolving]
